FAERS Safety Report 14258871 (Version 1)
Quarter: 2017Q4

REPORT INFORMATION
  Report Type: Spontaneous
  Country: US (occurrence: US)
  Receive Date: 20171207
  Receipt Date: 20171207
  Transmission Date: 20180321
  Serious: Yes (Death, Life-Threatening, Hospitalization, Other)
  Sender: FDA-Public Use
  Company Number: US-AUROBINDO-AUR-APL-2017-45003

PATIENT
  Age: 15 Year
  Sex: Female
  Weight: 41 kg

DRUGS (1)
  1. LIDOCAINE. [Suspect]
     Active Substance: LIDOCAINE
     Indication: STOMATITIS
     Dosage: UP TO 2 G (49 MG/KG), 2% VISCOUS LIDOCAINE FROM A 100-ML BOTTLE ()
     Route: 048

REACTIONS (16)
  - Cardiotoxicity [Unknown]
  - Brain herniation [Unknown]
  - Intentional overdose [Fatal]
  - Seizure [Unknown]
  - Muscle rigidity [Unknown]
  - Electrocardiogram QRS complex prolonged [Unknown]
  - Brain death [Fatal]
  - Hyperthermia [Unknown]
  - Apnoeic attack [Unknown]
  - Hypoxia [Unknown]
  - Cardiac arrest [Recovered/Resolved]
  - Tachycardia [Unknown]
  - Toxicity to various agents [Fatal]
  - Ischaemia [Unknown]
  - Incorrect route of drug administration [Unknown]
  - Hypertension [Unknown]
